FAERS Safety Report 8837521 (Version 1)
Quarter: 2012Q4

REPORT INFORMATION
  Report Type: 
  Country: US (occurrence: US)
  Receive Date: 20121012
  Receipt Date: 20121012
  Transmission Date: 20130627
  Serious: No
  Sender: FDA-Public Use
  Company Number: US-PFIZER INC-2012251424

PATIENT
  Age: 56 Year
  Sex: Male
  Weight: 81.63 kg

DRUGS (1)
  1. ADVIL [Suspect]
     Indication: BACK PAIN
     Dosage: 200 mg, as needed
     Route: 048
     Dates: start: 2012, end: 2012

REACTIONS (2)
  - Drug ineffective [Unknown]
  - Intentional overdose [Unknown]
